FAERS Safety Report 8256872-6 (Version None)
Quarter: 2012Q1

REPORT INFORMATION
  Report Type: 
  Country: None (occurrence: None)
  Receive Date: 20120330
  Receipt Date: 20110620
  Transmission Date: 20120608
  Serious: No
  Sender: FDA-Public Use
  Company Number: NL-023033

PATIENT
  Age: 64 Year
  Sex: Male

DRUGS (3)
  1. (OTHERS) [Concomitant]
  2. ACETAMINOPHEN [Concomitant]
  3. (CHLORAMBUCIL) [Suspect]
     Indication: CHRONIC LYMPHOCYTIC LEUKAEMIA
     Dosage: 10 MG/M2 AT DAYS 1-7 EVERY 28 DAYS
     Route: 048
     Dates: start: 20110224, end: 20110616

REACTIONS (1)
  - ALANINE AMINOTRANSFERASE INCREASED [None]
